FAERS Safety Report 4868887-6 (Version None)
Quarter: 2005Q4

REPORT INFORMATION
  Report Type: 
  Country: None (occurrence: None)
  Receive Date: 20051229
  Receipt Date: 20050711
  Transmission Date: 20060501
  Serious: Yes (Hospitalization)
  Sender: FDA-Public Use
  Company Number: US-MERCK-0507USA01497

PATIENT
  Age: 75 Year
  Sex: Female
  Weight: 109 kg

DRUGS (7)
  1. VIOXX [Suspect]
     Indication: PAIN
     Route: 048
     Dates: start: 20020401, end: 20030401
  2. ASPIRIN [Concomitant]
     Route: 065
  3. PRAVACHOL [Concomitant]
     Route: 065
  4. LASIX [Concomitant]
     Route: 065
  5. CAPOTEN [Concomitant]
     Route: 065
  6. NEXIUM [Concomitant]
     Route: 065
  7. AMIODARONE HYDROCHLORIDE [Concomitant]
     Route: 065

REACTIONS (2)
  - CHEST PAIN [None]
  - MYOCARDIAL INFARCTION [None]
